FAERS Safety Report 9412665 (Version 2)
Quarter: 2013Q3

REPORT INFORMATION
  Report Type: Spontaneous
  Country: US (occurrence: US)
  Receive Date: 20130722
  Receipt Date: 20130926
  Transmission Date: 20140515
  Serious: Yes (Death)
  Sender: FDA-Public Use
  Company Number: US-PFIZER INC-2013210218

PATIENT
  Age: 58 Year
  Sex: Male

DRUGS (1)
  1. ZYVOX [Suspect]
     Indication: NOCARDIOSIS
     Dosage: 600 MG, 2X/DAY
     Route: 048
     Dates: start: 20120910

REACTIONS (2)
  - Renal failure acute [Fatal]
  - Nocardiosis [Fatal]
